FAERS Safety Report 8890941 (Version 1)
Quarter: 2012Q4

REPORT INFORMATION
  Report Type: 
  Country: US (occurrence: US)
  Receive Date: 20121107
  Receipt Date: 20121107
  Transmission Date: 20130627
  Serious: Yes (Hospitalization)
  Sender: FDA-Public Use
  Company Number: US-ROCHE-1152810

PATIENT

DRUGS (2)
  1. ALTEPLASE [Suspect]
     Indication: LACUNAR INFARCTION
     Route: 065
  2. ABCIXIMAB [Concomitant]
     Indication: LACUNAR INFARCTION

REACTIONS (1)
  - Lacunar infarction [Unknown]
